FAERS Safety Report 6900485-2 (Version None)
Quarter: 2010Q3

REPORT INFORMATION
  Report Type: 
  Country: None (occurrence: None)
  Receive Date: 20100803
  Receipt Date: 20100722
  Transmission Date: 20110219
  Serious: Yes (Other)
  Sender: FDA-Public Use
  Company Number: JP-PFIZER INC-2010091475

PATIENT
  Sex: Female

DRUGS (5)
  1. SELARA [Suspect]
     Dosage: UNK
     Route: 048
     Dates: end: 20100701
  2. NORVASC [Concomitant]
     Dosage: UNK
     Route: 048
  3. DIOVAN [Concomitant]
     Dosage: UNK
     Route: 048
  4. LIPOVAS ^BANYU^ [Concomitant]
     Dosage: UNK
     Route: 048
  5. AMOBAN [Concomitant]
     Dosage: UNK
     Route: 048

REACTIONS (2)
  - ALANINE AMINOTRANSFERASE INCREASED [None]
  - ASPARTATE AMINOTRANSFERASE INCREASED [None]
